FAERS Safety Report 22636123 (Version 1)
Quarter: 2023Q2

REPORT INFORMATION
  Report Type: Spontaneous
  Country: US (occurrence: US)
  Receive Date: 20230623
  Receipt Date: 20230623
  Transmission Date: 20230721
  Serious: Yes (Hospitalization, Other)
  Sender: FDA-Public Use
  Company Number: US-PFIZER INC-US-GBT-017974

PATIENT
  Age: 9 Year
  Sex: Female
  Weight: 23.59 kg

DRUGS (6)
  1. OXBRYTA [Suspect]
     Active Substance: VOXELOTOR
     Indication: Sickle cell disease
     Dosage: 1000 MG, CYCLIC (EVERY DAY, BUT NOT ON SUNDAYS)
     Route: 048
     Dates: start: 202204, end: 2022
  2. OXBRYTA [Suspect]
     Active Substance: VOXELOTOR
     Dosage: 1000 MG, CYCLIC (ONCE DAILY FROM MON-SAT)
     Route: 048
     Dates: start: 202205, end: 202209
  3. OXBRYTA [Suspect]
     Active Substance: VOXELOTOR
     Dosage: 1000 MG, CYCLIC (EVERY DAY, BUT NOT ON SUNDAYS)
     Route: 048
     Dates: start: 202303
  4. HYDROXYUREA [Concomitant]
     Active Substance: HYDROXYUREA
     Indication: Sickle cell disease
     Dosage: 500 ML, MONDAY THROUGH THURSDAY
     Route: 048
  5. HYDROXYUREA [Concomitant]
     Active Substance: HYDROXYUREA
     Dosage: 1000 ML, FRIDAY TO SUNDAY
     Route: 048
  6. FOLIC ACID [Concomitant]
     Active Substance: FOLIC ACID
     Indication: Haemoglobin decreased
     Dosage: 100 MG, 1X/DAY
     Route: 048

REACTIONS (3)
  - Sickle cell anaemia with crisis [Not Recovered/Not Resolved]
  - Off label use [Unknown]
  - Product use issue [Unknown]

NARRATIVE: CASE EVENT DATE: 20220401
